FAERS Safety Report 12655562 (Version 2)
Quarter: 2016Q3

REPORT INFORMATION
  Report Type: Spontaneous
  Country: US (occurrence: US)
  Receive Date: 20160816
  Receipt Date: 20160901
  Transmission Date: 20161109
  Serious: Yes (Hospitalization)
  Sender: FDA-Public Use
  Company Number: US-BAYER-2016-152990

PATIENT
  Age: 64 Year
  Sex: Male

DRUGS (2)
  1. GADOLINIUM IN UNSPECIFIED DRUG [Suspect]
     Active Substance: GADOLINIUM
     Indication: NUCLEAR MAGNETIC RESONANCE IMAGING
  2. GADOLINIUM IN UNSPECIFIED DRUG [Suspect]
     Active Substance: GADOLINIUM
     Indication: SPINAL MYELOGRAM
     Dosage: UNK
     Route: 037

REACTIONS (2)
  - Off label use [None]
  - Toxic encephalopathy [Recovered/Resolved]
